FAERS Safety Report 8427541-4 (Version None)
Quarter: 2012Q2

REPORT INFORMATION
  Report Type: 
  Country: None (occurrence: None)
  Receive Date: 20120611
  Receipt Date: 20120529
  Transmission Date: 20120825
  Serious: Yes (Hospitalization, Other)
  Sender: FDA-Public Use
  Company Number: DE-TEVA-341353GER

PATIENT
  Sex: Female
  Weight: 70 kg

DRUGS (10)
  1. GEMCITABINE [Suspect]
     Indication: BREAST CANCER
     Route: 042
     Dates: start: 20111130
  2. RANITIDINE [Concomitant]
     Route: 042
     Dates: start: 20111207
  3. CLEMASTINE [Concomitant]
     Indication: PREMEDICATION
     Route: 042
     Dates: start: 20111207
  4. DOCETAXEL [Suspect]
     Dosage: 134.25 MILLIGRAM;
     Route: 041
     Dates: start: 20120118, end: 20120118
  5. DOCETAXEL [Suspect]
     Dosage: 179 MILLIGRAM;
     Route: 041
     Dates: start: 20111228, end: 20111228
  6. DEXABENE [Concomitant]
     Route: 042
     Dates: start: 20111130
  7. DOCETAXEL [Suspect]
     Indication: BREAST CANCER
     Dosage: 179 MILLIGRAM;
     Route: 041
     Dates: start: 20111207, end: 20111207
  8. EPOETIN ZETA [Concomitant]
     Route: 058
     Dates: start: 20111130
  9. GRANOCYTE [Concomitant]
     Route: 058
     Dates: start: 20111208
  10. DEXAMETHASONE [Concomitant]
     Route: 048
     Dates: start: 20111206

REACTIONS (3)
  - PANCYTOPENIA [None]
  - PULMONARY EMBOLISM [None]
  - DEEP VEIN THROMBOSIS [None]
